FAERS Safety Report 15214732 (Version 1)
Quarter: 2018Q3

REPORT INFORMATION
  Report Type: Spontaneous
  Country: JP (occurrence: JP)
  Receive Date: 20180730
  Receipt Date: 20180730
  Transmission Date: 20181010
  Serious: Yes (Other)
  Sender: FDA-Public Use
  Company Number: JP-GLAXOSMITHKLINE-JP2018JPN111059

PATIENT
  Age: 43 Year
  Sex: Female

DRUGS (1)
  1. VALTREX [Suspect]
     Active Substance: VALACYCLOVIR HYDROCHLORIDE
     Indication: GENITAL HERPES
     Dosage: 500 MG, QD
     Route: 048
     Dates: start: 201510

REACTIONS (4)
  - Blood immunoglobulin G increased [Recovering/Resolving]
  - Asthma [Not Recovered/Not Resolved]
  - Urticaria chronic [Recovered/Resolved]
  - Vulval ulceration [Recovering/Resolving]

NARRATIVE: CASE EVENT DATE: 201802
